FAERS Safety Report 13887124 (Version 1)
Quarter: 2017Q3

REPORT INFORMATION
  Report Type: Spontaneous
  Country: US (occurrence: US)
  Receive Date: 20170821
  Receipt Date: 20170821
  Transmission Date: 20171127
  Serious: No
  Sender: FDA-Public Use
  Company Number: GXBR2017US001878

PATIENT
  Sex: Male
  Weight: 74.83 kg

DRUGS (1)
  1. LORAZEPAM ACTAVIS 2MG [Suspect]
     Active Substance: LORAZEPAM
     Indication: FIBROMYALGIA
     Dosage: 1 DF, TID
     Route: 048

REACTIONS (1)
  - Heart rate increased [Not Recovered/Not Resolved]
